FAERS Safety Report 6166670-5 (Version None)
Quarter: 2009Q2

REPORT INFORMATION
  Report Type: 
  Country: None (occurrence: None)
  Receive Date: 20090423
  Receipt Date: 20090423
  Transmission Date: 20091009
  Serious: Yes (Other)
  Sender: FDA-Public Use
  Company Number: None

PATIENT
  Age: 33 Year
  Sex: Female
  Weight: 89.3586 kg

DRUGS (1)
  1. REMICADE [Suspect]
     Indication: RHEUMATOID ARTHRITIS
     Dates: start: 20090420, end: 20090420

REACTIONS (6)
  - ARTHRALGIA [None]
  - BLOOD PRESSURE DECREASED [None]
  - DYSPNOEA [None]
  - INFUSION RELATED REACTION [None]
  - RASH [None]
  - SWELLING FACE [None]
